FAERS Safety Report 4439129-0 (Version None)
Quarter: 2004Q3

REPORT INFORMATION
  Report Type: 
  Country: None (occurrence: None)
  Receive Date: 20040831
  Receipt Date: 20040810
  Transmission Date: 20050211
  Serious: No
  Sender: FDA-Public Use
  Company Number: D01200403031

PATIENT
  Age: 48 Year

DRUGS (8)
  1. (FONDAPARINUX) - SOLUTION - UNIT DOSE : UNKNOWN [Suspect]
     Indication: MYOCARDIAL INFARCTION
     Dosage: 2.5 MG QD
     Route: 058
     Dates: start: 20040805
  2. ASPIRIN [Concomitant]
  3. CLOPIDOGREL [Concomitant]
  4. UFH (HEPARIN) [Concomitant]
  5. SIMVASTEROL [Concomitant]
  6. METOPROLOL [Concomitant]
  7. CAPTOPRIL [Concomitant]
  8. TICLOPIDINE HCL [Concomitant]

REACTIONS (3)
  - CATHETER RELATED COMPLICATION [None]
  - PROCEDURAL COMPLICATION [None]
  - THROMBOSIS [None]
